FAERS Safety Report 9665791 (Version 1)
Quarter: 2013Q4

REPORT INFORMATION
  Report Type: Spontaneous
  Country: MX (occurrence: MX)
  Receive Date: 20131104
  Receipt Date: 20131104
  Transmission Date: 20140711
  Serious: Yes (Other)
  Sender: FDA-Public Use
  Company Number: PHHY2013MX123860

PATIENT
  Age: 78 Year
  Sex: Female

DRUGS (5)
  1. DIOVAN [Suspect]
     Indication: HYPERTENSION
     Dosage: 2 DF (80 MG), QD
     Route: 048
     Dates: end: 20130917
  2. DIOVAN [Suspect]
     Dosage: UNK UKN, UNK
  3. VIVENDAL [Suspect]
     Dosage: UNK UKN, UNK
  4. CINNARIZINE [Concomitant]
     Indication: NERVOUS SYSTEM DISORDER
     Dosage: 1 UKN, DAILY
     Dates: start: 2010
  5. LYRICA [Concomitant]
     Dosage: 1 UKN, QHS
     Dates: start: 2010

REACTIONS (9)
  - Myocardial infarction [Unknown]
  - Diabetes mellitus [Unknown]
  - Blood pressure increased [Recovered/Resolved]
  - Cardiac disorder [Unknown]
  - Tinnitus [Recovered/Resolved]
  - Dyspnoea [Recovered/Resolved]
  - Tremor [Recovered/Resolved]
  - Feeling abnormal [Unknown]
  - Dizziness [Recovered/Resolved]
